FAERS Safety Report 6382327-X (Version None)
Quarter: 2009Q3

REPORT INFORMATION
  Report Type: 
  Country: None (occurrence: None)
  Receive Date: 20090928
  Receipt Date: 20090928
  Transmission Date: 20100115
  Serious: Yes (Other)
  Sender: FDA-Public Use
  Company Number: None

PATIENT
  Sex: Male

DRUGS (2)
  1. BUDESONIDE [Suspect]
     Indication: ASTHMA
     Dosage: 0.5MG BID NEB
     Dates: start: 20081215
  2. BUDESONIDE [Suspect]
     Indication: ASTHMA
     Dosage: 0.5MG BID NEB
     Dates: start: 20081218

REACTIONS (1)
  - ABNORMAL BEHAVIOUR [None]
